FAERS Safety Report 7450865-4 (Version None)
Quarter: 2011Q2

REPORT INFORMATION
  Report Type: 
  Country: None (occurrence: None)
  Receive Date: 20110429
  Receipt Date: 20110429
  Transmission Date: 20111010
  Serious: Yes (Hospitalization)
  Sender: FDA-Public Use
  Company Number: None

PATIENT
  Age: 4 Year
  Sex: Male
  Weight: 18.1439 kg

DRUGS (1)
  1. OMNICEF [Suspect]

REACTIONS (3)
  - RASH [None]
  - URTICARIA [None]
  - LIP SWELLING [None]
